FAERS Safety Report 4541135-2 (Version None)
Quarter: 2004Q4

REPORT INFORMATION
  Report Type: 
  Country: None (occurrence: None)
  Receive Date: 20041228
  Receipt Date: 20041213
  Transmission Date: 20050328
  Serious: Yes (Hospitalization)
  Sender: FDA-Public Use
  Company Number: 2004PL000075

PATIENT
  Age: 46 Year
  Sex: Male

DRUGS (6)
  1. IMURAN [Suspect]
     Indication: MULTIPLE SCLEROSIS
     Dosage: ORAL
     Route: 048
  2. REBIF [Suspect]
     Indication: MULTIPLE SCLEROSIS
     Dosage: SUBCUTANEOUS
     Route: 058
     Dates: start: 20030801
  3. CYCLOSPORINE [Suspect]
     Indication: MULTIPLE SCLEROSIS
     Dosage: ORAL
     Route: 048
  4. PREDNISONE [Suspect]
     Indication: MULTIPLE SCLEROSIS
     Dosage: ORAL
     Route: 048
  5. CYCLOSPORINE [Concomitant]
  6. PREDNISONE [Concomitant]

REACTIONS (8)
  - ARTHROPATHY [None]
  - ERYTHEMA [None]
  - FEELING HOT [None]
  - IMMUNOSUPPRESSION [None]
  - INFLUENZA LIKE ILLNESS [None]
  - LYMPHATIC DISORDER [None]
  - NASOPHARYNGEAL DISORDER [None]
  - SEPSIS [None]
